FAERS Safety Report 5052310-5 (Version None)
Quarter: 2006Q3

REPORT INFORMATION
  Report Type: 
  Country: None (occurrence: None)
  Receive Date: 20060717
  Receipt Date: 20060705
  Transmission Date: 20061208
  Serious: Yes (Other)
  Sender: FDA-Public Use
  Company Number: HQWYE668507JUL06

PATIENT
  Sex: Female
  Weight: 60 kg

DRUGS (2)
  1. ENBREL [Suspect]
     Indication: RHEUMATOID ARTHRITIS
     Route: 058
     Dates: start: 20050202
  2. DICLOFENAC [Concomitant]
     Indication: PAIN

REACTIONS (4)
  - DECREASED IMMUNE RESPONSIVENESS [None]
  - GALLBLADDER DISORDER [None]
  - HYPERTENSION [None]
  - RENAL FAILURE [None]
